FAERS Safety Report 6011935-0 (Version None)
Quarter: 2008Q4

REPORT INFORMATION
  Report Type: 
  Country: None (occurrence: None)
  Receive Date: 20081218
  Receipt Date: 20081007
  Transmission Date: 20090506
  Serious: No
  Sender: FDA-Public Use
  Company Number: US-ASTRAZENECA-2008UW21900

PATIENT
  Age: 39 Year
  Sex: Female

DRUGS (2)
  1. CRESTOR [Suspect]
     Route: 048
     Dates: end: 20080915
  2. ENPRESSE [Concomitant]
     Dosage: DAILY

REACTIONS (1)
  - ALOPECIA [None]
